FAERS Safety Report 7782641-7 (Version None)
Quarter: 2011Q3

REPORT INFORMATION
  Report Type: 
  Country: None (occurrence: None)
  Receive Date: 20110926
  Receipt Date: 20110912
  Transmission Date: 20111222
  Serious: Yes (Other)
  Sender: FDA-Public Use
  Company Number: TPA2011A05464

PATIENT
  Age: 86 Year
  Sex: Male
  Weight: 97.5234 kg

DRUGS (1)
  1. ACTOS [Suspect]
     Dates: start: 20080101

REACTIONS (1)
  - BLADDER CANCER [None]
